FAERS Safety Report 8400641-0 (Version None)
Quarter: 2012Q2

REPORT INFORMATION
  Report Type: 
  Country: None (occurrence: None)
  Receive Date: 20120531
  Receipt Date: 20120529
  Transmission Date: 20120825
  Serious: Yes (Hospitalization, Other)
  Sender: FDA-Public Use
  Company Number: GB-ROCHE-1044302

PATIENT
  Sex: Female
  Weight: 64 kg

DRUGS (3)
  1. PREDNISOLONE [Concomitant]
  2. MABTHERA [Suspect]
     Indication: RHEUMATOID ARTHRITIS
     Dosage: LAST DOSE PRIOR TO SAE 29 NOV 2011
     Dates: start: 20111115
  3. PREDNISOLONE [Concomitant]

REACTIONS (3)
  - PNEUMONIA [None]
  - CHOLELITHIASIS [None]
  - LIVER FUNCTION TEST ABNORMAL [None]
